FAERS Safety Report 25659999 (Version 1)
Quarter: 2025Q3

REPORT INFORMATION
  Report Type: Spontaneous
  Country: US (occurrence: None)
  Receive Date: 20250807
  Receipt Date: 20250807
  Transmission Date: 20251021
  Serious: Yes (Other)
  Sender: FDA-CTU
  Company Number: None

PATIENT
  Age: 82 Year
  Sex: Male
  Weight: 64.7 kg

DRUGS (1)
  1. LEQEMBI [Suspect]
     Active Substance: LECANEMAB-IRMB
     Indication: Dementia Alzheimer^s type
     Route: 042
     Dates: start: 20240716, end: 20250708

REACTIONS (2)
  - Infarction [None]
  - Metastases to central nervous system [None]

NARRATIVE: CASE EVENT DATE: 20250711
